FAERS Safety Report 5352635-X (Version None)
Quarter: 2007Q2

REPORT INFORMATION
  Report Type: 
  Country: None (occurrence: None)
  Receive Date: 20070518
  Receipt Date: 20070221
  Transmission Date: 20071010
  Serious: No
  Sender: FDA-Public Use
  Company Number: TPA2007A00450

PATIENT
  Age: 76 Year
  Sex: Female
  Weight: 58.0604 kg

DRUGS (13)
  1. ROZEREM [Suspect]
     Indication: INSOMNIA
     Dosage: 8 MG, HS, PER ORAL
     Route: 048
     Dates: start: 20070101, end: 20070101
  2. NEURONTIN [Concomitant]
  3. XANAXA (ALPRAZOLAM) [Concomitant]
  4. K EFFERVESCENT (POTASSIUM BICARBONATE, POTASSIUM CHLORIDE) [Concomitant]
  5. ASACOL (MESALAZINE) (TABLETS) [Concomitant]
  6. NOVASC (AMLODIPINE BESILATE) [Concomitant]
  7. NEXIUM [Concomitant]
  8. LISINOPRIL [Concomitant]
  9. LEVOTHYROXINE SODIUM [Concomitant]
  10. PREDNISONE TAB [Concomitant]
  11. ENTOCORT (BUDESONIDE) (CAPSULES) [Concomitant]
  12. COSOPT (TIMOLOL MALEATE, DORZOLAMIDE HYDROCHLORIDE) (DROPS) [Concomitant]
  13. XALATAN (LANTANOPROST)(DROPS) [Concomitant]

REACTIONS (2)
  - DRUG INEFFECTIVE [None]
  - INITIAL INSOMNIA [None]
